FAERS Safety Report 8861321 (Version 1)
Quarter: 2012Q4

REPORT INFORMATION
  Report Type: 
  Country: US (occurrence: US)
  Receive Date: 20121026
  Receipt Date: 20121026
  Transmission Date: 20130627
  Serious: No
  Sender: FDA-Public Use
  Company Number: US-PFIZER INC-2012244435

PATIENT
  Age: 79 Year
  Sex: Female
  Weight: 47.17 kg

DRUGS (1)
  1. VFEND [Suspect]
     Dosage: 200 mg, 2x/day
     Route: 048
     Dates: start: 20120730, end: 20120905

REACTIONS (4)
  - Dyspnoea [Not Recovered/Not Resolved]
  - Cough [Not Recovered/Not Resolved]
  - Night sweats [Not Recovered/Not Resolved]
  - Malaise [Not Recovered/Not Resolved]
